FAERS Safety Report 13915717 (Version 1)
Quarter: 2017Q3

REPORT INFORMATION
  Report Type: Spontaneous
  Country: US (occurrence: US)
  Receive Date: 20170829
  Receipt Date: 20170829
  Transmission Date: 20171127
  Serious: No
  Sender: FDA-Public Use
  Company Number: US-MYLANLABS-2017M1008461

PATIENT
  Sex: Male
  Weight: 108.84 kg

DRUGS (2)
  1. CLONIDINE. [Suspect]
     Active Substance: CLONIDINE
     Indication: LABILE HYPERTENSION
     Dosage: UNK
     Dates: end: 2016
  2. CLONIDINE. [Suspect]
     Active Substance: CLONIDINE
     Indication: LABILE HYPERTENSION
     Dosage: UNK

REACTIONS (2)
  - Application site rash [Not Recovered/Not Resolved]
  - Application site scab [Not Recovered/Not Resolved]
